FAERS Safety Report 11989913 (Version 1)
Quarter: 2016Q1

REPORT INFORMATION
  Report Type: Spontaneous
  Country: US (occurrence: US)
  Receive Date: 20160202
  Receipt Date: 20160202
  Transmission Date: 20160526
  Serious: No
  Sender: FDA-Public Use
  Company Number: US-IMPAX LABORATORIES, INC-2015-IPXL-01255

PATIENT
  Sex: Male
  Weight: 76.19 kg

DRUGS (3)
  1. SYNTHROID [Concomitant]
     Active Substance: LEVOTHYROXINE SODIUM
     Indication: HYPOTHYROIDISM
     Dosage: 25 ?G, ONE TABLET 1 /DAY
     Route: 065
  2. SEROQUEL [Concomitant]
     Active Substance: QUETIAPINE FUMARATE
     Indication: PARKINSON^S DISEASE
     Dosage: 25 MG, 1 TABLET AT BEDTIME
     Route: 048
  3. RYTARY [Suspect]
     Active Substance: CARBIDOPA\LEVODOPA
     Indication: PARKINSON^S DISEASE
     Dosage: (48.75/195 MG) FOUR CAPSULES FOUR TIMES DAILY
     Route: 048

REACTIONS (5)
  - Illogical thinking [Unknown]
  - Disorganised speech [Unknown]
  - Delusion [Unknown]
  - Paranoia [Unknown]
  - Hallucination [Unknown]

NARRATIVE: CASE EVENT DATE: 2015
